FAERS Safety Report 7564061-3 (Version None)
Quarter: 2011Q2

REPORT INFORMATION
  Report Type: 
  Country: None (occurrence: None)
  Receive Date: 20110622
  Receipt Date: 20110615
  Transmission Date: 20111010
  Serious: No
  Sender: FDA-Public Use
  Company Number: US-BAXTER-2011BH017762

PATIENT
  Age: 62 Year
  Sex: Female

DRUGS (2)
  1. DIANEAL [Suspect]
     Indication: PERITONEAL DIALYSIS
     Route: 033
     Dates: end: 20110506
  2. DIANEAL [Suspect]
     Route: 033
     Dates: start: 20110523

REACTIONS (2)
  - WEIGHT DECREASED [None]
  - DEVICE LEAKAGE [None]
